FAERS Safety Report 13708451 (Version 1)
Quarter: 2017Q2

REPORT INFORMATION
  Report Type: Spontaneous
  Country: US (occurrence: US)
  Receive Date: 20170630
  Receipt Date: 20170630
  Transmission Date: 20170830
  Serious: No
  Sender: FDA-Public Use
  Company Number: US-GLAXOSMITHKLINE-US2017096885

PATIENT
  Sex: Female

DRUGS (2)
  1. FLONASE [Suspect]
     Active Substance: FLUTICASONE PROPIONATE
     Indication: RASH
  2. FLONASE [Suspect]
     Active Substance: FLUTICASONE PROPIONATE
     Indication: DERMATITIS CONTACT
     Dosage: UNK UNK, BID (DOING THIS TWICE A DAY)

REACTIONS (4)
  - Product use in unapproved indication [Unknown]
  - Incorrect route of drug administration [Unknown]
  - Inappropriate schedule of drug administration [Unknown]
  - Drug effective for unapproved indication [Unknown]
